FAERS Safety Report 8322583-1 (Version None)
Quarter: 2012Q2

REPORT INFORMATION
  Report Type: 
  Country: None (occurrence: None)
  Receive Date: 20120430
  Receipt Date: 20120419
  Transmission Date: 20120825
  Serious: Yes (Hospitalization, Disabling)
  Sender: FDA-Public Use
  Company Number: US-JNJFOC-20120409824

PATIENT
  Sex: Male
  Weight: 102.06 kg

DRUGS (4)
  1. FENTANYL-100 [Suspect]
     Route: 062
  2. DURAGESIC-100 [Suspect]
     Route: 062
  3. DURAGESIC-100 [Suspect]
     Indication: PAIN
     Dosage: STARTED ABOUT 8 YEARS AGO
     Route: 062
  4. FENTANYL-100 [Suspect]
     Indication: PAIN
     Route: 062
     Dates: end: 20120401

REACTIONS (9)
  - PALPITATIONS [None]
  - PAIN [None]
  - WRONG TECHNIQUE IN DRUG USAGE PROCESS [None]
  - PRODUCT QUALITY ISSUE [None]
  - GALLBLADDER OBSTRUCTION [None]
  - INTERVERTEBRAL DISC PROTRUSION [None]
  - DRUG INEFFECTIVE [None]
  - PYREXIA [None]
  - DERMATITIS CONTACT [None]
